FAERS Safety Report 6241591-8 (Version None)
Quarter: 2009Q2

REPORT INFORMATION
  Report Type: 
  Country: None (occurrence: None)
  Receive Date: 20090623
  Receipt Date: 20040808
  Transmission Date: 20091009
  Serious: Yes (Life-Threatening, Hospitalization)
  Sender: FDA-Public Use
  Company Number: IL-ROCHE-377238

PATIENT
  Sex: Male
  Weight: 99 kg

DRUGS (49)
  1. DACLIZUMAB [Suspect]
     Route: 042
     Dates: start: 20040721, end: 20040721
  2. DACLIZUMAB [Suspect]
     Route: 042
     Dates: start: 20040804, end: 20040913
  3. MYCOPHENOLATE MOFETIL [Suspect]
     Route: 048
     Dates: start: 20040721
  4. MYCOPHENOLATE MOFETIL [Suspect]
     Route: 048
     Dates: start: 20041108
  5. SIROLIMUS [Suspect]
     Route: 048
     Dates: start: 20040721
  6. SIROLIMUS [Suspect]
     Route: 048
     Dates: start: 20040724
  7. SIROLIMUS [Suspect]
     Route: 048
     Dates: start: 20040817
  8. SIROLIMUS [Suspect]
     Route: 048
     Dates: start: 20050329
  9. SIROLIMUS [Suspect]
     Route: 048
     Dates: start: 20060202
  10. SIROLIMUS [Suspect]
     Route: 048
     Dates: start: 20070419
  11. PREDNISONE [Suspect]
     Route: 048
     Dates: start: 20040725
  12. PREDNISONE [Suspect]
     Route: 048
     Dates: start: 20040830
  13. PREDNISONE [Suspect]
     Route: 048
     Dates: start: 20040913
  14. PREDNISONE [Suspect]
     Route: 048
     Dates: start: 20040927
  15. SOLU-MEDROL [Suspect]
     Route: 042
     Dates: start: 20040721
  16. SOLU-MEDROL [Suspect]
     Route: 042
     Dates: start: 20040726, end: 20040729
  17. AMLODIPINE [Concomitant]
     Route: 048
     Dates: start: 20040725, end: 20040726
  18. AMLODIPINE [Concomitant]
     Route: 048
     Dates: start: 20041016
  19. CARVEDILOL [Concomitant]
     Route: 048
     Dates: start: 20040723
  20. CARVEDILOL [Concomitant]
     Route: 048
     Dates: start: 20041016
  21. FUROSEMIDE [Concomitant]
     Route: 048
     Dates: start: 20040726
  22. FUROSEMIDE [Concomitant]
     Route: 048
     Dates: start: 20040728
  23. FUROSEMIDE [Concomitant]
     Route: 048
     Dates: start: 20041016
  24. FUROSEMIDE [Concomitant]
     Route: 048
     Dates: start: 20041020
  25. FUROSEMIDE [Concomitant]
     Route: 048
     Dates: start: 20041025
  26. FUROSEMIDE [Concomitant]
     Route: 048
     Dates: start: 20041108
  27. HEPARIN [Concomitant]
     Route: 058
     Dates: start: 20040722, end: 20040805
  28. INSULIN [Concomitant]
     Dosage: FREQUENCY : PN
     Route: 058
     Dates: start: 20040721
  29. INSULIN [Concomitant]
     Route: 058
     Dates: start: 20040729
  30. INSULIN [Concomitant]
     Route: 058
     Dates: start: 20040803
  31. INSULIN [Concomitant]
     Route: 058
     Dates: start: 20041020
  32. COTRIMOXAZOLE [Concomitant]
  33. CANDESARTAN [Concomitant]
     Route: 048
     Dates: start: 20041108
  34. CANDESARTAN [Concomitant]
     Route: 048
     Dates: start: 20050711
  35. CEFTRIAXONE SODIUM [Concomitant]
     Route: 042
     Dates: start: 20041018, end: 20041024
  36. CEFTRIAXONE SODIUM [Concomitant]
     Route: 042
     Dates: start: 20041111, end: 20041121
  37. CILAZAPRIL [Concomitant]
     Route: 048
     Dates: start: 20040913, end: 20041108
  38. CIPROFLOXACIN [Concomitant]
     Route: 042
     Dates: start: 20040721, end: 20040723
  39. CIPROFLOXACIN [Concomitant]
     Route: 048
     Dates: start: 20040729
  40. CIPROFLOXACIN [Concomitant]
     Route: 048
     Dates: start: 20040802, end: 20040804
  41. CIPROFLOXACIN [Concomitant]
     Dosage: STOP DATE: AUGUST 2004.
     Route: 048
     Dates: start: 20040816
  42. CLINDAMYCIN [Concomitant]
     Route: 042
     Dates: start: 20040721, end: 20040804
  43. FLUTICASONE [Concomitant]
     Dosage: FREQUENCY PN
     Dates: start: 20050523
  44. IMIPENEM [Concomitant]
     Route: 042
     Dates: start: 20040730, end: 20040802
  45. IRON [Concomitant]
     Route: 048
     Dates: start: 20050207
  46. LEVOFLOXACIN [Concomitant]
     Route: 048
     Dates: start: 20041016, end: 20041102
  47. LEVOFLOXACIN [Concomitant]
     Route: 048
     Dates: start: 20041112, end: 20041206
  48. PRAVASTATIN [Concomitant]
     Route: 048
     Dates: start: 20040816, end: 20040830
  49. SIMVASTATIN [Concomitant]
     Route: 048
     Dates: start: 20040913, end: 20050207

REACTIONS (4)
  - ARTHRITIS [None]
  - KLEBSIELLA SEPSIS [None]
  - PNEUMONIA [None]
  - PYREXIA [None]
